FAERS Safety Report 8364792-1 (Version None)
Quarter: 2012Q2

REPORT INFORMATION
  Report Type: 
  Country: None (occurrence: None)
  Receive Date: 20120516
  Receipt Date: 20120503
  Transmission Date: 20120825
  Serious: Yes (Hospitalization)
  Sender: FDA-Public Use
  Company Number: IT-ROCHE-1066472

PATIENT
  Sex: Female
  Weight: 47.5 kg

DRUGS (7)
  1. PEGASYS [Suspect]
     Dosage: THERAPY RESTARTED AT REDUCED DOSE
  2. COPEGUS [Suspect]
     Indication: HEPATITIS C
     Dates: start: 20120123, end: 20120326
  3. BLINDED ALISPORIVIR [Suspect]
     Indication: HEPATITIS C
     Dates: start: 20120123, end: 20120403
  4. HYDROCHLOROTHIAZIDE [Concomitant]
  5. MOEXIPRIL HYDROCHLORIDE [Concomitant]
  6. PEGASYS [Suspect]
     Indication: HEPATITIS C
     Dates: start: 20120123, end: 20120401
  7. LORAZEPAM [Concomitant]

REACTIONS (1)
  - HYPERTENSIVE CRISIS [None]
